FAERS Safety Report 5027636-1 (Version None)
Quarter: 2006Q2

REPORT INFORMATION
  Report Type: 
  Country: None (occurrence: None)
  Receive Date: 20060614
  Receipt Date: 20060614
  Transmission Date: 20061013
  Serious: No
  Sender: FDA-Public Use
  Company Number: None

PATIENT

DRUGS (2)
  1. AMOXICILL  400 MG / 5ML  TEVA [Suspect]
     Indication: EAR INFECTION
     Dosage: 1 TSP  2 TIMES DAILY PO
     Route: 048
     Dates: start: 20060114, end: 20060122
  2. AMOXICILL  400 MG / 5ML  TEVA [Suspect]
     Indication: EAR INFECTION
     Dosage: 1 TSP  2 TIMES DAILY PO
     Route: 048
     Dates: start: 20060604, end: 20060612

REACTIONS (2)
  - INCORRECT DRUG ADMINISTRATION DURATION [None]
  - PHARMACEUTICAL PRODUCT COMPLAINT [None]
